FAERS Safety Report 6370961-2 (Version None)
Quarter: 2009Q3

REPORT INFORMATION
  Report Type: 
  Country: None (occurrence: None)
  Receive Date: 20090923
  Receipt Date: 20070918
  Transmission Date: 20100115
  Serious: Yes (Other)
  Sender: FDA-Public Use
  Company Number: US-ASTRAZENECA-2006UW22317

PATIENT
  Age: 48 Year
  Sex: Female
  Weight: 122 kg

DRUGS (19)
  1. SEROQUEL [Suspect]
     Indication: BIPOLAR DISORDER
     Dosage: 25 MG-600 MG
     Route: 048
     Dates: start: 19981217
  2. SEROQUEL [Suspect]
     Indication: DEPRESSION
     Dosage: 25 MG-600 MG
     Route: 048
     Dates: start: 19981217
  3. SEROQUEL [Suspect]
     Route: 048
     Dates: start: 20030401
  4. SEROQUEL [Suspect]
     Route: 048
     Dates: start: 20030401
  5. HALDOL [Concomitant]
     Dates: start: 19840101, end: 20000101
  6. RISPERDAL [Concomitant]
     Dates: start: 19840101
  7. ZYPREXA [Concomitant]
     Dates: start: 19960101, end: 19990101
  8. LEVOFLOXACIN [Concomitant]
  9. ZALEPLON [Concomitant]
  10. DILTIAZEM HYDROCHLORIDE [Concomitant]
  11. HYDROCHLOROTHIAZIDE [Concomitant]
  12. MAGNESIUM OXIDE [Concomitant]
  13. NEXIUM [Concomitant]
  14. KLONOPIN [Concomitant]
  15. AMBIEN [Concomitant]
  16. WELLBUTRIN [Concomitant]
  17. LIPITOR [Concomitant]
  18. GLUCOPHAGE [Concomitant]
  19. REMERON [Concomitant]

REACTIONS (2)
  - DIABETES MELLITUS [None]
  - DIABETIC COMA [None]
